FAERS Safety Report 25923987 (Version 3)
Quarter: 2025Q4

REPORT INFORMATION
  Report Type: Spontaneous
  Country: JP (occurrence: JP)
  Receive Date: 20251015
  Receipt Date: 20251110
  Transmission Date: 20260117
  Serious: No
  Sender: ALEXION PHARMACEUTICALS
  Company Number: JP-AstraZeneca-CH-00967616A

PATIENT
  Age: 98 Year
  Sex: Female
  Weight: 37 kg

DRUGS (10)
  1. TEZSPIRE [Suspect]
     Active Substance: TEZEPELUMAB-EKKO
     Indication: Asthma
     Dosage: 210 MILLIGRAM
  2. TEZSPIRE [Suspect]
     Active Substance: TEZEPELUMAB-EKKO
  3. DAYVIGO [Concomitant]
     Active Substance: LEMBOREXANT
  4. MONTELUKAST [Concomitant]
     Active Substance: MONTELUKAST
  5. CANDESARTAN [Concomitant]
     Active Substance: CANDESARTAN
  6. LANSOPRAZOLE [Concomitant]
     Active Substance: LANSOPRAZOLE
  7. ELDECALCITOL [Concomitant]
     Active Substance: ELDECALCITOL
  8. AMBROXOL [Concomitant]
     Active Substance: AMBROXOL
  9. RISEDRONIC ACID [Concomitant]
     Active Substance: RISEDRONIC ACID
  10. FUROSEMIDE [Concomitant]
     Active Substance: FUROSEMIDE
     Dosage: 20 MILLIGRAM
     Route: 065

REACTIONS (7)
  - Weight increased [Unknown]
  - Fluid retention [Recovered/Resolved]
  - Dyspnoea [Unknown]
  - Chest pain [Unknown]
  - Palpitations [Unknown]
  - Dyspnoea paroxysmal nocturnal [Unknown]
  - Oedema peripheral [Unknown]

NARRATIVE: CASE EVENT DATE: 20250912
